FAERS Safety Report 23180908 (Version 3)
Quarter: 2024Q1

REPORT INFORMATION
  Report Type: Spontaneous
  Country: BR (occurrence: BR)
  Receive Date: 20231114
  Receipt Date: 20240110
  Transmission Date: 20240410
  Serious: Yes (Other)
  Sender: FDA-Public Use
  Company Number: BR-MYLANLABS-2023M1120547

PATIENT
  Age: 76 Year
  Sex: Female

DRUGS (5)
  1. AMLODIPINE [Suspect]
     Active Substance: AMLODIPINE BESYLATE
     Indication: Blood pressure abnormal
     Dosage: UNK
     Route: 065
  2. ELIQUIS [Suspect]
     Active Substance: APIXABAN
     Indication: Blood pressure abnormal
     Dosage: 5 MILLIGRAM, BID
     Route: 065
  3. ELIQUIS [Suspect]
     Active Substance: APIXABAN
     Indication: Thrombosis
  4. INDAPAMIDE [Suspect]
     Active Substance: INDAPAMIDE
     Indication: Blood pressure abnormal
     Dosage: UNK
     Route: 065
  5. LOSARTAN POTASSIUM [Concomitant]
     Active Substance: LOSARTAN POTASSIUM
     Indication: Blood pressure abnormal
     Dosage: UNK
     Route: 065

REACTIONS (15)
  - Phlebitis [Recovered/Resolved]
  - Deep vein thrombosis [Recovered/Resolved]
  - Cerebrovascular accident [Unknown]
  - Glaucoma [Unknown]
  - Productive cough [Unknown]
  - Reading disorder [Unknown]
  - Mental disorder [Unknown]
  - Varicose vein [Recovering/Resolving]
  - Pain in extremity [Unknown]
  - Blood disorder [Unknown]
  - Tooth disorder [Unknown]
  - Post procedural infection [Unknown]
  - Thyroid disorder [Unknown]
  - Tooth extraction [Unknown]
  - Peripheral swelling [Unknown]

NARRATIVE: CASE EVENT DATE: 20230301
